FAERS Safety Report 10019660 (Version 1)
Quarter: 2014Q1

REPORT INFORMATION
  Report Type: Spontaneous
  Country: JP (occurrence: JP)
  Receive Date: 20140318
  Receipt Date: 20140318
  Transmission Date: 20141002
  Serious: Yes (Other)
  Sender: FDA-Public Use
  Company Number: JP-OTSUKA-JP-2014-12491

PATIENT
  Sex: 0

DRUGS (1)
  1. BUSULFEX [Suspect]
     Indication: ALLOGENIC BONE MARROW TRANSPLANTATION THERAPY
     Dosage: 6.4 MG/KG, UNK
     Route: 041

REACTIONS (1)
  - Toxicity to various agents [Unknown]
